FAERS Safety Report 10298308 (Version 1)
Quarter: 2014Q3

REPORT INFORMATION
  Report Type: Spontaneous
  Country: CH (occurrence: CH)
  Receive Date: 20140711
  Receipt Date: 20140711
  Transmission Date: 20150326
  Serious: Yes (Other)
  Sender: FDA-Public Use
  Company Number: PHHY2014CH084877

PATIENT
  Age: 56 Year
  Sex: Female
  Weight: 48 kg

DRUGS (6)
  1. LEFLUNOMIDE SANDOZ [Suspect]
     Active Substance: LEFLUNOMIDE
     Dosage: 10 MG, QD
     Route: 048
     Dates: start: 20140701, end: 20140701
  2. MAGNESIOCARD ORANGE [Concomitant]
  3. SPIRICORT [Concomitant]
     Active Substance: PREDNISOLONE
  4. REBALANCE [Concomitant]
  5. MOTILIUM [Concomitant]
     Active Substance: DOMPERIDONE
  6. BRUFEN//IBUPROFEN [Concomitant]

REACTIONS (5)
  - Eye irritation [Recovering/Resolving]
  - Dyspnoea [Recovering/Resolving]
  - Fatigue [Not Recovered/Not Resolved]
  - Dizziness [Recovering/Resolving]
  - Hypoaesthesia oral [Recovering/Resolving]

NARRATIVE: CASE EVENT DATE: 20140701
